FAERS Safety Report 6684550-3 (Version None)
Quarter: 2010Q2

REPORT INFORMATION
  Report Type: 
  Country: None (occurrence: None)
  Receive Date: 20100416
  Receipt Date: 20100412
  Transmission Date: 20101027
  Serious: Yes (Death, Hospitalization)
  Sender: FDA-Public Use
  Company Number: JP-BAYER-200912998BYL

PATIENT
  Age: 65 Year
  Sex: Female
  Weight: 49 kg

DRUGS (10)
  1. NEXAVAR [Suspect]
     Indication: HEPATIC NEOPLASM MALIGNANT
     Dosage: TOTAL DAILY DOSE: 800 MG  UNIT DOSE: 200 MG
     Route: 048
     Dates: start: 20090629, end: 20090705
  2. NEXAVAR [Suspect]
     Dosage: UNIT DOSE: 200 MG
     Route: 048
     Dates: start: 20090706, end: 20090806
  3. LASIX [Concomitant]
     Dosage: SINCE BEFORE ADMINISTRATION
     Route: 048
  4. ALDACTONE [Concomitant]
     Dosage: SINCE BEFORE ADMINISTRATION
     Route: 048
  5. HERBESSER [Concomitant]
     Dosage: UNIT DOSE: 30 MG
     Route: 048
  6. SIGMART [Concomitant]
     Dosage: SINCE BEFORE ADMINISTRATION
     Route: 048
  7. FAMOTIDINE [Concomitant]
     Indication: GASTRITIS PROPHYLAXIS
     Dosage: SINCE BEFORE ADMINISTRATION
     Route: 048
  8. MAGMITT [Concomitant]
     Dosage: SINCE BEFORE ADMINISTRATION
     Route: 048
  9. DAI-KENCHU-TO [Concomitant]
     Dosage: SINCE BEFORE ADMINISTRATION
     Route: 048
  10. MYSLEE [Concomitant]
     Dosage: SINCE BEFORE ADMINISTRATION
     Route: 048

REACTIONS (3)
  - DECREASED APPETITE [None]
  - HEPATIC NEOPLASM MALIGNANT [None]
  - PYOTHORAX [None]
